FAERS Safety Report 24993883 (Version 1)
Quarter: 2025Q1

REPORT INFORMATION
  Report Type: Report from Study
  Country: US (occurrence: US)
  Receive Date: 20250221
  Receipt Date: 20250221
  Transmission Date: 20250409
  Serious: Yes (Other)
  Sender: ABBVIE
  Company Number: US-ABBVIE-6136845

PATIENT
  Sex: Female

DRUGS (1)
  1. RINVOQ [Suspect]
     Active Substance: UPADACITINIB
     Indication: Rheumatoid arthritis
     Route: 048

REACTIONS (6)
  - Amyotrophic lateral sclerosis [Not Recovered/Not Resolved]
  - Speech disorder [Not Recovered/Not Resolved]
  - Muscular weakness [Not Recovered/Not Resolved]
  - Gait inability [Not Recovered/Not Resolved]
  - Dysphagia [Not Recovered/Not Resolved]
  - Expired product administered [Not Recovered/Not Resolved]
